FAERS Safety Report 7472256-2 (Version None)
Quarter: 2011Q2

REPORT INFORMATION
  Report Type: 
  Country: None (occurrence: None)
  Receive Date: 20110511
  Receipt Date: 20110428
  Transmission Date: 20111010
  Serious: Yes (Hospitalization)
  Sender: FDA-Public Use
  Company Number: US-JNJFOC-20110503990

PATIENT
  Age: 29 Year
  Sex: Female
  Weight: 63.3 kg

DRUGS (7)
  1. ACETAMINOPHEN [Suspect]
     Indication: PRODUCT USED FOR UNKNOWN INDICATION
     Route: 065
  2. ASPIRIN [Suspect]
     Indication: PRODUCT USED FOR UNKNOWN INDICATION
  3. SERTRALINE HYDROCHLORIDE [Suspect]
     Indication: PSYCHIATRIC SYMPTOM
  4. FLUOXETINE [Suspect]
     Indication: PRODUCT USED FOR UNKNOWN INDICATION
  5. LORAZEPAM [Suspect]
     Indication: PRODUCT USED FOR UNKNOWN INDICATION
  6. ACETAMINOPHEN [Suspect]
     Route: 065
  7. LAMOTRIGINE [Suspect]
     Indication: PSYCHIATRIC SYMPTOM

REACTIONS (2)
  - HEPATIC FUNCTION ABNORMAL [None]
  - MULTIPLE DRUG OVERDOSE INTENTIONAL [None]
